FAERS Safety Report 10416775 (Version 2)
Quarter: 2014Q3

REPORT INFORMATION
  Report Type: Spontaneous
  Country: US (occurrence: US)
  Receive Date: 20140828
  Receipt Date: 20140828
  Transmission Date: 20150326
  Serious: Yes (Hospitalization)
  Sender: FDA-Public Use
  Company Number: US-RECKITT BENCKISER PHARMACEUTICAL, INC-RB-2881-2006

PATIENT
  Sex: Female
  Weight: 49.89 kg

DRUGS (1)
  1. SUBOXONE [Suspect]
     Active Substance: BUPRENORPHINE HYDROCHLORIDE\NALOXONE HYDROCHLORIDE
     Indication: PRODUCT USED FOR UNKNOWN INDICATION
     Dosage: 4 MG
     Route: 060
     Dates: start: 20060224

REACTIONS (8)
  - Nausea [Unknown]
  - Hyperhidrosis [Unknown]
  - Urinary retention [Unknown]
  - Insomnia [Unknown]
  - Abdominal distension [Unknown]
  - Chest discomfort [Recovered/Resolved]
  - Diarrhoea [Unknown]
  - Dyspnoea [Unknown]

NARRATIVE: CASE EVENT DATE: 20060224
